FAERS Safety Report 9095674 (Version 1)
Quarter: 2013Q1

REPORT INFORMATION
  Report Type: Spontaneous
  Country: DK (occurrence: None)
  Receive Date: 20130123
  Receipt Date: 20130123
  Transmission Date: 20140127
  Serious: Yes (Hospitalization)
  Sender: FDA-Public Use
  Company Number: 2013MA000480

PATIENT
  Age: 53 Year
  Sex: Male

DRUGS (4)
  1. IRINOTECAN HYDROCHLORIDE INJECTION, 20MG/ML (40MG/2ML AND 100MG/5ML) (ATLLC) (IRINOTECAN) [Suspect]
     Indication: COLORECTAL CANCER METASTATIC
  2. OXALIPLATIN FOR INJECTION USP 100MG SINGLE-DOSE VIALS (ATLLC) (OXALIPLATIN) [Suspect]
     Indication: COLORECTAL CANCER METASTATIC
  3. FLUOROURACIL (FLUOROURACIL) [Suspect]
     Indication: COLORECTAL CANCER METASTATIC
  4. CALCIUM FOLINATE (CALCIUM FOLINATE) [Suspect]
     Indication: COLORECTAL CANCER METASTATIC

REACTIONS (5)
  - Scrotal swelling [None]
  - Pain [None]
  - Pyrexia [None]
  - Hydrocele [None]
  - Orchitis [None]
